FAERS Safety Report 23305619 (Version 1)
Quarter: 2023Q4

REPORT INFORMATION
  Report Type: Spontaneous
  Country: TW (occurrence: TW)
  Receive Date: 20231218
  Receipt Date: 20231218
  Transmission Date: 20240110
  Serious: Yes (Hospitalization, Other)
  Sender: FDA-Public Use
  Company Number: TW-BAXTER-2023BAX037844

PATIENT
  Age: 31 Year
  Sex: Male
  Weight: 63.2 kg

DRUGS (16)
  1. CYCLOPHOSPHAMIDE [Suspect]
     Active Substance: CYCLOPHOSPHAMIDE
     Indication: Diffuse large B-cell lymphoma
     Dosage: 1297.5 MG, EVERY 3 WEEKS
     Route: 042
     Dates: start: 20230914, end: 20231012
  2. CYCLOPHOSPHAMIDE [Suspect]
     Active Substance: CYCLOPHOSPHAMIDE
     Dosage: 1342.5 MG, EVERY 3 WEEKS
     Route: 042
     Dates: start: 20231102
  3. EPCORITAMAB [Suspect]
     Active Substance: EPCORITAMAB
     Indication: Diffuse large B-cell lymphoma
     Dosage: 48 MG C1 (STEP-UP), CYCLES 2 - 4 (21-DAY CYCLE, WEEKLY DOSE), C5 - 8 (21-DAY CYCLE, EVERY 3 WEEKS) P
     Route: 058
     Dates: start: 20230914
  4. EPCORITAMAB [Suspect]
     Active Substance: EPCORITAMAB
     Dosage: 0.16 MG, TOTAL
     Route: 058
     Dates: start: 20230914, end: 20230914
  5. EPCORITAMAB [Suspect]
     Active Substance: EPCORITAMAB
     Dosage: 0.8 MG INTERMEDIATE DOSE; C1, D8, TOTAL
     Route: 058
     Dates: start: 20230921, end: 20230921
  6. EPCORITAMAB [Suspect]
     Active Substance: EPCORITAMAB
     Dosage: 48 MG, EVERY 1 WEEKS
     Route: 058
     Dates: start: 20230928
  7. VINCRISTINE [Suspect]
     Active Substance: VINCRISTINE
     Indication: Diffuse large B-cell lymphoma
     Dosage: 2 MG, EVERY 3 WEEKS
     Route: 042
     Dates: start: 20230914
  8. RITUXIMAB [Suspect]
     Active Substance: RITUXIMAB
     Indication: Diffuse large B-cell lymphoma
     Dosage: 648.75 MG, EVERY 3 WEEKS
     Route: 042
     Dates: start: 20230914, end: 20231012
  9. RITUXIMAB [Suspect]
     Active Substance: RITUXIMAB
     Dosage: 671.25 MG, EVERY 3 WEEKS
     Route: 042
     Dates: start: 20231102
  10. DOXORUBICIN [Suspect]
     Active Substance: DOXORUBICIN
     Indication: Diffuse large B-cell lymphoma
     Dosage: 86.55 MG, EVERY 3 WEEKS
     Route: 042
     Dates: start: 20230914, end: 20231012
  11. DOXORUBICIN [Suspect]
     Active Substance: DOXORUBICIN
     Dosage: 89.5 MG, EVERY 3 WEEKS
     Route: 042
     Dates: start: 20231102
  12. PREDNISONE [Suspect]
     Active Substance: PREDNISONE
     Indication: Diffuse large B-cell lymphoma
     Dosage: 100 MG C1-6, DAY 1-5, EVERY 1 DAYS
     Route: 048
     Dates: start: 20230914
  13. BACIDE [Concomitant]
     Indication: Antifungal prophylaxis
     Dosage: 1 DOSAGE FORM QN, EVERY 1 DAYS
     Route: 065
     Dates: start: 20231004
  14. VALTREX [Concomitant]
     Active Substance: VALACYCLOVIR HYDROCHLORIDE
     Indication: Prophylaxis
     Dosage: 500 MG, EVERY 2 DAYS
     Route: 065
     Dates: start: 20231012
  15. Mopride [Concomitant]
     Indication: Diarrhoea
     Dosage: 5 MG, 3/DAYS
     Dates: start: 20231025
  16. TRIAMCINOLONE [Concomitant]
     Active Substance: TRIAMCINOLONE
     Indication: Mouth ulceration
     Dosage: UNK1 DOSAGE FORM 1 APPLICATION
     Route: 065
     Dates: start: 20231004

REACTIONS (7)
  - Blood fibrinogen decreased [Recovered/Resolved]
  - Neutropenia [Recovered/Resolved]
  - Vomiting [Not Recovered/Not Resolved]
  - Productive cough [Unknown]
  - Vomiting [Unknown]
  - Nausea [Unknown]
  - Malaise [Unknown]

NARRATIVE: CASE EVENT DATE: 20231017
